FAERS Safety Report 25439427 (Version 1)
Quarter: 2025Q2

REPORT INFORMATION
  Report Type: Spontaneous
  Country: US (occurrence: None)
  Receive Date: 20250613
  Receipt Date: 20250613
  Transmission Date: 20250717
  Serious: Yes (Hospitalization)
  Sender: FDA-CTU
  Company Number: None

PATIENT
  Sex: Female

DRUGS (13)
  1. LENALIDOMIDE [Suspect]
     Active Substance: LENALIDOMIDE
     Indication: Plasma cell myeloma
     Route: 048
     Dates: start: 20250611
  2. DARZALEX [Suspect]
     Active Substance: DARATUMUMAB
  3. DEXAMETHASONE [Suspect]
     Active Substance: DEXAMETHASONE
  4. ACYCLOVIR [Concomitant]
     Active Substance: ACYCLOVIR
  5. AMLODIPINE [Concomitant]
     Active Substance: AMLODIPINE BESYLATE
  6. ASPIRIN [Concomitant]
     Active Substance: ASPIRIN
  7. CARVEDILOL [Concomitant]
     Active Substance: CARVEDILOL
  8. DARZALEX [Concomitant]
     Active Substance: DARATUMUMAB
  9. DEXAMETHASONE [Concomitant]
     Active Substance: DEXAMETHASONE
  10. FUROSEMIDE [Concomitant]
     Active Substance: FUROSEMIDE
  11. GABAPENTIN [Concomitant]
     Active Substance: GABAPENTIN
  12. JARDIANCE [Concomitant]
     Active Substance: EMPAGLIFLOZIN
  13. KLOR-CON M20 [Concomitant]
     Active Substance: POTASSIUM CHLORIDE

REACTIONS (3)
  - Inappropriate schedule of product administration [None]
  - Pneumonia [None]
  - Neutropenia [None]
